FAERS Safety Report 6092974-0 (Version None)
Quarter: 2009Q1

REPORT INFORMATION
  Report Type: 
  Country: None (occurrence: None)
  Receive Date: 20090224
  Receipt Date: 20090210
  Transmission Date: 20090719
  Serious: Yes (Hospitalization)
  Sender: FDA-Public Use
  Company Number: KV200801127

PATIENT
  Age: 89 Year
  Sex: Female
  Weight: 47.6 kg

DRUGS (13)
  1. MORPHINE SULFATE [Suspect]
     Indication: PAIN
     Dosage: 15 MG, 1-2 TABLETS Q4H PRN, ORAL
     Route: 048
     Dates: start: 20080708
  2. COZAAR [Concomitant]
  3. HYDROCHLOROTHIAZIDE [Concomitant]
  4. LEXAPRO [Concomitant]
  5. ZETIA [Concomitant]
  6. WARFARIN SODIUM [Concomitant]
  7. LEVOTHYROXINE SODIUM [Concomitant]
  8. ACTONEL [Concomitant]
  9. TOPROL-XL [Concomitant]
  10. DIGOXIN [Concomitant]
  11. PREDNISONE TAB [Concomitant]
  12. LASIX [Concomitant]
  13. REMERON [Concomitant]

REACTIONS (8)
  - DIZZINESS [None]
  - MUSCLE TWITCHING [None]
  - OVERDOSE [None]
  - PRODUCT QUALITY ISSUE [None]
  - RESPIRATORY ARREST [None]
  - RETCHING [None]
  - SOMNOLENCE [None]
  - UNRESPONSIVE TO STIMULI [None]
